FAERS Safety Report 21692305 (Version 1)
Quarter: 2022Q4

REPORT INFORMATION
  Report Type: Report from Study
  Country: CA (occurrence: CA)
  Receive Date: 20221207
  Receipt Date: 20221207
  Transmission Date: 20230113
  Serious: Yes (Hospitalization)
  Sender: FDA-Public Use
  Company Number: CA-ABBVIE-4186632

PATIENT
  Sex: Male

DRUGS (2)
  1. VENCLEXTA [Suspect]
     Active Substance: VENETOCLAX
     Indication: Chronic lymphocytic leukaemia
     Dosage: 4 X 100 MG TABLET
     Route: 048
     Dates: start: 2022
  2. VENCLEXTA [Suspect]
     Active Substance: VENETOCLAX
     Indication: Chronic lymphocytic leukaemia
     Dosage: 4 X 100 MG TABLET
     Route: 048
     Dates: start: 20220401, end: 20220920

REACTIONS (7)
  - Respiratory failure [Not Recovered/Not Resolved]
  - Pyrexia [Unknown]
  - Malaise [Unknown]
  - Hospitalisation [Unknown]
  - Pneumonia [Unknown]
  - COVID-19 [Unknown]
  - Immunosuppression [Unknown]

NARRATIVE: CASE EVENT DATE: 20220101
